FAERS Safety Report 21837966 (Version 1)
Quarter: 2023Q1

REPORT INFORMATION
  Report Type: Report from Study
  Country: DE (occurrence: DE)
  Receive Date: 20230109
  Receipt Date: 20230109
  Transmission Date: 20230418
  Serious: Yes (Hospitalization)
  Sender: FDA-Public Use
  Company Number: DE-ROCHE-2883162

PATIENT
  Age: 91 Year
  Sex: Female
  Weight: 57 kg

DRUGS (6)
  1. PACLITAXEL [Suspect]
     Active Substance: PACLITAXEL
     Indication: Malignant peritoneal neoplasm
     Dosage: 175 MILLIGRAM/KILOGRAM
     Route: 042
     Dates: start: 20191119, end: 20210504
  2. BEVACIZUMAB [Suspect]
     Active Substance: BEVACIZUMAB
     Indication: Malignant peritoneal neoplasm
     Dosage: 15 MILLIGRAM/KILOGRAM
     Route: 042
     Dates: start: 20191119, end: 20210707
  3. CARBOPLATIN [Suspect]
     Active Substance: CARBOPLATIN
     Indication: Malignant peritoneal neoplasm
     Dosage: UNK
     Route: 042
     Dates: start: 20191119, end: 20210504
  4. ATEZOLIZUMAB [Suspect]
     Active Substance: ATEZOLIZUMAB
     Indication: Malignant peritoneal neoplasm
     Dosage: 1200 MILLIGRAM
     Route: 042
     Dates: start: 20191119, end: 20210526
  5. THYROX [Concomitant]
     Indication: Hypothyroidism
     Dosage: 100 MILLIGRAM
     Route: 065
     Dates: start: 20200101
  6. FOLISANIN [Concomitant]
     Dosage: 5 MILLIGRAM
     Route: 065
     Dates: start: 20210713

REACTIONS (1)
  - Hypothyroidism [Recovered/Resolved]

NARRATIVE: CASE EVENT DATE: 20200101
